FAERS Safety Report 7385871-1 (Version None)
Quarter: 2011Q1

REPORT INFORMATION
  Report Type: 
  Country: None (occurrence: None)
  Receive Date: 20110331
  Receipt Date: 20110329
  Transmission Date: 20110831
  Serious: No
  Sender: FDA-Public Use
  Company Number: US-PFIZER INC-2011070092

PATIENT
  Sex: Female

DRUGS (2)
  1. ADVIL PM [Suspect]
     Indication: RESTLESSNESS
     Dosage: UNK, DAILY
     Dates: start: 20110328, end: 20110329
  2. ADVIL PM [Suspect]
     Indication: PAIN

REACTIONS (1)
  - ANXIETY [None]
